FAERS Safety Report 9332874 (Version 2)
Quarter: 2013Q2

REPORT INFORMATION
  Report Type: Spontaneous
  Country: IT (occurrence: IT)
  Receive Date: 20130606
  Receipt Date: 20130613
  Transmission Date: 20140414
  Serious: Yes (Other)
  Sender: FDA-Public Use
  Company Number: IT-BRISTOL-MYERS SQUIBB COMPANY-18963389

PATIENT
  Sex: Male

DRUGS (1)
  1. YERVOY [Suspect]

REACTIONS (3)
  - Pneumonia [Recovering/Resolving]
  - Transaminases increased [Recovering/Resolving]
  - Rash [Unknown]
